FAERS Safety Report 6690413-X (Version None)
Quarter: 2010Q2

REPORT INFORMATION
  Report Type: 
  Country: None (occurrence: None)
  Receive Date: 20100421
  Receipt Date: 20090921
  Transmission Date: 20101027
  Serious: No
  Sender: FDA-Public Use
  Company Number: US-ASTRAZENECA-2009SE14286

PATIENT
  Age: 82 Year
  Sex: Male

DRUGS (1)
  1. CASODEX [Suspect]
     Indication: PROSTATE CANCER
     Dosage: TAKING A TABLET EVERY OTHER DAY
     Route: 048

REACTIONS (2)
  - DEPRESSION [None]
  - DRUG DOSE OMISSION [None]
